FAERS Safety Report 9132898 (Version 1)
Quarter: 2013Q1

REPORT INFORMATION
  Report Type: Spontaneous
  Country: US (occurrence: US)
  Receive Date: 20130301
  Receipt Date: 20130301
  Transmission Date: 20140127
  Serious: Yes (Hospitalization)
  Sender: FDA-Public Use
  Company Number: US-ELI_LILLY_AND_COMPANY-US201302001342

PATIENT
  Age: 49 Year
  Sex: Male
  Weight: 156 kg

DRUGS (8)
  1. PRASUGREL HYDROCHLORIDE [Suspect]
     Dosage: UNK
     Dates: start: 20111103
  2. VALSARTAN/HYDROCHLOORTHIAZIDE [Concomitant]
     Dosage: UNK, QD
     Route: 048
  3. METOPROLOL SUCCINATE [Concomitant]
     Dosage: 50 MG, QD
     Route: 048
  4. DIPHENHYDRAMINE HCL [Concomitant]
     Dosage: 25 MG, EACH EVENING
     Route: 048
  5. ASPIRIN [Concomitant]
     Dosage: 325 MG, QD
     Route: 048
  6. NITROGLYCERIN [Concomitant]
     Dosage: 0.4 MG, OTHER
     Route: 060
  7. ACETAMINOPHEN [Concomitant]
     Dosage: 325 MG, UNK
     Route: 048
  8. EPINEPHRINE [Concomitant]
     Dosage: 0.3 DF, UNK

REACTIONS (1)
  - Angina unstable [Unknown]
